FAERS Safety Report 4702521-0 (Version None)
Quarter: 2005Q2

REPORT INFORMATION
  Report Type: 
  Country: None (occurrence: None)
  Receive Date: 20050622
  Receipt Date: 20050610
  Transmission Date: 20051028
  Serious: Yes (Other)
  Sender: FDA-Public Use
  Company Number: 2005-01019

PATIENT
  Age: 71 Year
  Sex: Female

DRUGS (5)
  1. IMMUCYST [Suspect]
     Indication: BLADDER CANCER
     Dosage: (81.0 MG) I.VES, BLADDER
     Route: 042
     Dates: start: 20050418, end: 20050523
  2. MECOBALAMIN [Concomitant]
  3. TOCOPHEROL ACETATE [Concomitant]
  4. DIAZAPEM [Concomitant]
  5. LORATADINE [Concomitant]

REACTIONS (4)
  - BLOOD TEST ABNORMAL [None]
  - INFECTION [None]
  - PYREXIA [None]
  - WHITE BLOOD CELLS URINE POSITIVE [None]
